FAERS Safety Report 7242812-5 (Version None)
Quarter: 2011Q1

REPORT INFORMATION
  Report Type: 
  Country: None (occurrence: None)
  Receive Date: 20110125
  Receipt Date: 20110120
  Transmission Date: 20110831
  Serious: Yes (Other)
  Sender: FDA-Public Use
  Company Number: US-B.I. PHARMACEUTICALS,INC./RIDGEFIELD-2010-BP-11966BP

PATIENT
  Sex: Female

DRUGS (6)
  1. PRILOSEC [Concomitant]
     Indication: ABDOMINAL DISCOMFORT
     Dosage: 40 MG
  2. PAROXETINE HCL [Concomitant]
     Dosage: 10 MG
  3. CALCIUM [Concomitant]
     Indication: PROPHYLAXIS
     Dosage: 1500 MG
  4. VITAMIN D [Concomitant]
     Indication: PROPHYLAXIS
     Dosage: 1000 U
  5. OXYBUTYNIN [Concomitant]
     Indication: BLADDER DISORDER
     Dosage: 5 MG
  6. SPIRIVA [Suspect]
     Indication: EMPHYSEMA
     Dosage: 18 MCG
     Route: 055
     Dates: start: 20070101

REACTIONS (1)
  - LUNG NEOPLASM MALIGNANT [None]
